FAERS Safety Report 7816168-0 (Version None)
Quarter: 2011Q4

REPORT INFORMATION
  Report Type: 
  Country: None (occurrence: None)
  Receive Date: 20111015
  Receipt Date: 20111004
  Transmission Date: 20120403
  Serious: Yes (Death, Hospitalization)
  Sender: FDA-Public Use
  Company Number: GB-ROCHE-800907

PATIENT
  Sex: Male

DRUGS (5)
  1. PREDNISONE [Concomitant]
     Indication: RHEUMATOID ARTHRITIS
     Route: 048
  2. METHOTREXATE [Concomitant]
     Indication: RHEUMATOID ARTHRITIS
     Route: 048
  3. WARFARIN SODIUM [Concomitant]
     Indication: DEEP VEIN THROMBOSIS
     Route: 048
  4. FOLIC ACID [Concomitant]
     Indication: RHEUMATOID ARTHRITIS
     Route: 048
  5. MABTHERA [Suspect]
     Indication: RHEUMATOID ARTHRITIS
     Dosage: HAD RECEIVED 2 COURSES OF MABTHERA
     Route: 042

REACTIONS (6)
  - PNEUMONIA [None]
  - CELLULITIS [None]
  - DEATH [None]
  - CARDIAC ARREST [None]
  - DEEP VEIN THROMBOSIS [None]
  - PLEURITIC PAIN [None]
